FAERS Safety Report 4706685-4 (Version None)
Quarter: 2005Q2

REPORT INFORMATION
  Report Type: 
  Country: None (occurrence: None)
  Receive Date: 20050629
  Receipt Date: 20050427
  Transmission Date: 20051028
  Serious: No
  Sender: FDA-Public Use
  Company Number: 05P-163-0298623-00

PATIENT
  Age: 55 Year
  Sex: Female
  Weight: 79.3795 kg

DRUGS (12)
  1. HUMIRA [Suspect]
     Indication: SARCOIDOSIS
     Dosage: 40 MG, 1 IN 2 WK, SUBCUTANEOUS
     Route: 058
     Dates: start: 20050413
  2. PREDNISONE [Concomitant]
  3. LANSOPRAZOLE [Concomitant]
  4. CALCIUM WITH VITAMIN D [Concomitant]
  5. AVINZA [Concomitant]
  6. LEVETIRACETAM [Concomitant]
  7. VENLAFAXINE HCL [Concomitant]
  8. PRIMIDONE [Concomitant]
  9. NIFEDIPINE [Concomitant]
  10. ZELNORM [Concomitant]
  11. LACTULOSE [Concomitant]
  12. RASPASIS [Concomitant]

REACTIONS (2)
  - INJECTION SITE PAIN [None]
  - RASH [None]
